FAERS Safety Report 9676024 (Version 2)
Quarter: 2013Q4

REPORT INFORMATION
  Report Type: Spontaneous
  Country: CA (occurrence: CA)
  Receive Date: 20131107
  Receipt Date: 20131125
  Transmission Date: 20140711
  Serious: Yes (Hospitalization, Other)
  Sender: FDA-Public Use
  Company Number: CA-TEVA-442578USA

PATIENT
  Age: 60 Year
  Sex: Female

DRUGS (6)
  1. TEVA-TAMOXIFEN [Suspect]
     Indication: BREAST CANCER
     Dosage: 20 MILLIGRAM DAILY;
     Dates: start: 20121201
  2. CALCIUM [Concomitant]
  3. VITAMIN D [Concomitant]
     Dosage: 10,000 U/WEEK
  4. DOM-ALENDRONATE [Concomitant]
  5. HYPNOTIC [Concomitant]
  6. PREDNISONE [Concomitant]
     Indication: RESPIRATORY DISORDER
     Dosage: 30 MILLIGRAM DAILY;
     Route: 048

REACTIONS (4)
  - Organising pneumonia [Recovered/Resolved]
  - Pneumonia [Recovered/Resolved]
  - Cough [Recovered/Resolved]
  - Dyspnoea [Recovered/Resolved]
